FAERS Safety Report 6635577-9 (Version None)
Quarter: 2010Q1

REPORT INFORMATION
  Report Type: 
  Country: None (occurrence: None)
  Receive Date: 20100311
  Receipt Date: 20100311
  Transmission Date: 20100710
  Serious: Yes (Life-Threatening)
  Sender: FDA-Public Use
  Company Number: None

PATIENT
  Age: 74 Year
  Sex: Female
  Weight: 103.8737 kg

DRUGS (2)
  1. 5-AZACITADINE [Suspect]
     Indication: RENAL CELL CARCINOMA
     Dosage: 35MG/M2 DAYS 1-7 EVERY 28 SQ
     Route: 058
     Dates: start: 20100209, end: 20100215
  2. BEVACIZUMAB [Suspect]
     Indication: RENAL CELL CARCINOMA
     Dosage: 10 MG/KG DAYS 1 AND 15 IV DRIP
     Route: 041
     Dates: start: 20100209, end: 20100223

REACTIONS (5)
  - INFLUENZA [None]
  - OEDEMA PERIPHERAL [None]
  - RESPIRATORY FAILURE [None]
  - SEPSIS [None]
  - WEIGHT INCREASED [None]
